FAERS Safety Report 19812562 (Version 1)
Quarter: 2021Q3

REPORT INFORMATION
  Report Type: Spontaneous
  Country: US (occurrence: US)
  Receive Date: 20210908
  Receipt Date: 20210908
  Transmission Date: 20211014
  Serious: Yes (Other)
  Sender: FDA-Public Use
  Company Number: None

PATIENT
  Age: 31 Year
  Sex: Female
  Weight: 68.04 kg

DRUGS (4)
  1. TAVOL [Concomitant]
  2. ESTRADIOL 0.1MG/24 HOUR BY MYLAN [Suspect]
     Active Substance: ESTRADIOL
     Indication: RADICAL HYSTERECTOMY
     Dosage: ?          OTHER DOSE:0.1MG/24H;?
     Route: 062
     Dates: start: 20210101
  3. CARBOPLATIN. [Concomitant]
     Active Substance: CARBOPLATIN
  4. ESTRADIOL 0.1MG/24 HOUR BY MYLAN [Suspect]
     Active Substance: ESTRADIOL
     Indication: OOPHORECTOMY BILATERAL
     Dosage: ?          OTHER DOSE:0.1MG/24H;?
     Route: 062
     Dates: start: 20210101

REACTIONS (9)
  - Product adhesion issue [None]
  - Application site urticaria [None]
  - Skin irritation [None]
  - Application site vesicles [None]
  - Application site scar [None]
  - Application site pruritus [None]
  - Application site reaction [None]
  - Application site haemorrhage [None]
  - Product substitution issue [None]

NARRATIVE: CASE EVENT DATE: 20210101
